FAERS Safety Report 4328379-X (Version None)
Quarter: 2004Q1

REPORT INFORMATION
  Report Type: 
  Country: None (occurrence: None)
  Receive Date: 20040325
  Receipt Date: 20031218
  Transmission Date: 20041129
  Serious: Yes (Hospitalization)
  Sender: FDA-Public Use
  Company Number: USA-2003-0012152

PATIENT
  Sex: Female

DRUGS (3)
  1. SPECTRACEF TABLETS 200MG (CEFDITOREN PIVOXIL) [Suspect]
     Indication: BRONCHITIS BACTERIAL
  2. COUMADIN [Suspect]
  3. ROCEPHIN [Suspect]

REACTIONS (1)
  - COAGULATION TIME PROLONGED [None]
